FAERS Safety Report 18494745 (Version 2)
Quarter: 2020Q4

REPORT INFORMATION
  Report Type: Spontaneous
  Country: ES (occurrence: ES)
  Receive Date: 20201112
  Receipt Date: 20201112
  Transmission Date: 20210114
  Serious: Yes (Hospitalization, Other)
  Sender: FDA-Public Use
  Company Number: ES-009507513-2009ESP000999

PATIENT
  Age: 87 Year
  Sex: Male
  Weight: 55 kg

DRUGS (11)
  1. PEMBROLIZUMAB. [Suspect]
     Active Substance: PEMBROLIZUMAB
     Indication: LUNG ADENOCARCINOMA STAGE IV
     Dosage: 200 MILLIGRAM, Q3W
     Dates: start: 20200612
  2. REPAGLINIDE. [Concomitant]
     Active Substance: REPAGLINIDE
     Indication: DIABETES MELLITUS
     Dosage: TOTAL DAILT DOSE: 1 OR 1.5 MG PER DAY; START DATE: SEPTEMBER 20 (YEAR UNKNOWN)
  3. PEMBROLIZUMAB. [Suspect]
     Active Substance: PEMBROLIZUMAB
     Dosage: 200 MILLIGRAM, Q3W
     Dates: start: 20200807
  4. OMEPRAZOLE. [Concomitant]
     Active Substance: OMEPRAZOLE
     Indication: PROPHYLAXIS
     Dosage: 20 MILLIGRAM, Q12H; START DATE: OCTOBER 13 (YEAR UNKNOWN)
     Route: 048
  5. SOLIFENACIN SUCCINATE. [Concomitant]
     Active Substance: SOLIFENACIN SUCCINATE
     Indication: HYPERTONIC BLADDER
     Dosage: 5 MILLIGRAM, QD; START DATE: FEBRUARY 15 (YEAR UNKNOWN)
     Route: 048
  6. ENALAPRIL MALEATE. [Concomitant]
     Active Substance: ENALAPRIL MALEATE
     Indication: HYPERTENSION
     Dosage: 10 MILLIGRAM, QD; START DATE: AUGUST 17 (YEAR UNKNOWN)
     Route: 048
  7. PEMBROLIZUMAB. [Suspect]
     Active Substance: PEMBROLIZUMAB
     Dosage: 200 MILLIGRAM, Q3W
     Dates: start: 20200703
  8. MANIDIPINE HYDROCHLORIDE [Concomitant]
     Active Substance: MANIDIPINE HYDROCHLORIDE
     Indication: HYPERTENSION
     Dosage: 10 MILLIGRAM, Q12H; START DATE: MARCH 15 (YEAR UNKNOWN)
     Route: 048
  9. ATORVASTATIN [Concomitant]
     Active Substance: ATORVASTATIN
     Indication: HYPERCHOLESTEROLAEMIA
     Dosage: 10 MILLIGRAM, QD; START DATE: DECEMBER 17 (YEAR UNKNOWN)
     Route: 048
  10. PEMBROLIZUMAB. [Suspect]
     Active Substance: PEMBROLIZUMAB
     Dosage: 200 MILLIGRAM, Q3W
     Dates: start: 20201023
  11. DUTASTERIDE (+) TAMSULOSIN HYDROCHLORIDE [Concomitant]
     Indication: BENIGN PROSTATIC HYPERPLASIA
     Dosage: STRENGTH: 0.5/0.4MG; TOTAL DAILY DOSE: 0.5/0.4MG/START DATE: JUNE 18 (YEAR UNKNOWN)
     Route: 048

REACTIONS (16)
  - Pancreatitis acute [Recovered/Resolved]
  - Acute kidney injury [Recovered/Resolved]
  - Pathological fracture [Unknown]
  - Pancreatitis acute [Unknown]
  - Lymphopenia [Recovering/Resolving]
  - Hyponatraemia [Unknown]
  - Metabolic acidosis [Recovered/Resolved]
  - Head injury [Unknown]
  - Chronic kidney disease [Unknown]
  - Hypoglycaemia [Unknown]
  - Fall [Unknown]
  - Platelet count decreased [Recovering/Resolving]
  - Haemolysis [Unknown]
  - Hyperkalaemia [Recovered/Resolved]
  - Normochromic normocytic anaemia [Unknown]
  - Inappropriate schedule of product administration [Unknown]

NARRATIVE: CASE EVENT DATE: 202006
